FAERS Safety Report 5109353-2 (Version None)
Quarter: 2006Q3

REPORT INFORMATION
  Report Type: 
  Country: None (occurrence: None)
  Receive Date: 20060920
  Receipt Date: 20060906
  Transmission Date: 20061208
  Serious: Yes (Death, Other)
  Sender: FDA-Public Use
  Company Number: US-PURDUE-USA_2006_0025136

PATIENT
  Age: 41 Year
  Sex: Male

DRUGS (3)
  1. OXYCONTIN [Suspect]
     Indication: PAIN IN EXTREMITY
     Dosage: 100 MG, TID
  2. VALIUM [Concomitant]
     Indication: ANXIETY
     Dosage: UNK, UNK
  3. VICODIN [Suspect]
     Indication: BREAKTHROUGH PAIN
     Dosage: UNK, UD

REACTIONS (3)
  - COMPLETED SUICIDE [None]
  - DRUG ABUSER [None]
  - INTENTIONAL DRUG MISUSE [None]
